FAERS Safety Report 4427551-8 (Version None)
Quarter: 2004Q3

REPORT INFORMATION
  Report Type: 
  Country: None (occurrence: None)
  Receive Date: 20040812
  Receipt Date: 20040730
  Transmission Date: 20050211
  Serious: Yes (Death)
  Sender: FDA-Public Use
  Company Number: 04H-062-0269132-00

PATIENT
  Age: 83 Year
  Sex: Female

DRUGS (2)
  1. HEPARIN SODIUM [Suspect]
     Indication: THROMBOSIS PROPHYLAXIS
     Dosage: 7500 IU, THREE TIMES A DAY, SUBCUTANEOUS
     Route: 058
  2. AMPICILLIN SODIUM/SULBACTAM SODIUM [Concomitant]

REACTIONS (22)
  - ADRENAL DISORDER [None]
  - AORTIC THROMBOSIS [None]
  - ARTERIAL THROMBOSIS [None]
  - CHOLELITHIASIS [None]
  - COLD SWEAT [None]
  - CYANOSIS [None]
  - DEPRESSED LEVEL OF CONSCIOUSNESS [None]
  - GASTRIC CANCER [None]
  - GASTRIC DISORDER [None]
  - HEPARIN-INDUCED THROMBOCYTOPENIA [None]
  - HEPATIC INFARCTION [None]
  - HEPATIC STEATOSIS [None]
  - PALLOR [None]
  - PERIPHERAL OCCLUSIVE DISEASE [None]
  - PNEUMONIA [None]
  - PULMONARY HAEMORRHAGE [None]
  - PULMONARY INFARCTION [None]
  - RENAL CYST [None]
  - RENAL FAILURE ACUTE [None]
  - RENAL VEIN THROMBOSIS [None]
  - SEPSIS [None]
  - VOMITING [None]
